FAERS Safety Report 9256043 (Version 1)
Quarter: 2013Q2

REPORT INFORMATION
  Report Type: Spontaneous
  Country: US (occurrence: US)
  Receive Date: 20130425
  Receipt Date: 20130425
  Transmission Date: 20140414
  Serious: No
  Sender: FDA-Public Use
  Company Number: US-AMGEN-USASP2012006975

PATIENT
  Age: 49 Year
  Sex: Female
  Weight: 68.03 kg

DRUGS (4)
  1. NEULASTA [Suspect]
     Indication: CHEMOTHERAPY
     Dosage: 6 MG, ONE TIME DOSE
     Dates: start: 20120128, end: 20120128
  2. FLUOROURACIL [Concomitant]
  3. EPIRUBICIN [Concomitant]
  4. CYCLOPHOSPHAMIDE [Concomitant]

REACTIONS (6)
  - Dysstasia [Unknown]
  - Mobility decreased [Unknown]
  - Pain [Unknown]
  - Back pain [Recovering/Resolving]
  - Injection site pain [Unknown]
  - Bone pain [Not Recovered/Not Resolved]
